FAERS Safety Report 12339842 (Version 1)
Quarter: 2016Q2

REPORT INFORMATION
  Report Type: Spontaneous
  Country: FR (occurrence: FR)
  Receive Date: 20160506
  Receipt Date: 20160506
  Transmission Date: 20160815
  Serious: Yes (Other)
  Sender: FDA-Public Use
  Company Number: FR-009507513-1605FRA000055

PATIENT
  Age: 100 Year
  Sex: Female
  Weight: 57.6 kg

DRUGS (10)
  1. NORSET [Suspect]
     Active Substance: MIRTAZAPINE
     Indication: DEPRESSION
     Dosage: 15 MG, QD, 0-0-1
     Route: 048
     Dates: start: 20150908
  2. RISPERIDONE. [Suspect]
     Active Substance: RISPERIDONE
     Dosage: 1.5 MG, QD
     Route: 048
     Dates: start: 201504, end: 20150907
  3. BISOCE [Concomitant]
     Active Substance: BISOPROLOL
     Dosage: 1 DF, QD, 1-0-0
     Route: 048
  4. OGASTORO [Concomitant]
     Active Substance: LANSOPRAZOLE
     Dosage: 1 DF, QD, 0-0-1
     Route: 048
  5. LEVOTHYROX [Concomitant]
     Active Substance: LEVOTHYROXINE
     Dosage: 1 DF, QD, 1-0-0
     Route: 048
  6. TEMESTA [Suspect]
     Active Substance: LORAZEPAM
     Dosage: 2 DF, QD, 1/2-1/2-1
     Route: 048
     Dates: end: 20150908
  7. DUROGESIC [Concomitant]
     Active Substance: FENTANYL
     Dosage: 1 UNK, 1 IN 72 HOURS, 12 MCG/HOURS (2.1 MG / 5.25 SQ. CM)
     Route: 062
  8. FUROSEMIDE. [Concomitant]
     Active Substance: FUROSEMIDE
     Dosage: 20 MG, QD, 1-0-0
  9. BISOCE [Concomitant]
     Active Substance: BISOPROLOL
     Dosage: 1 DF, QD, 0-0-1
     Route: 048
  10. DUROGESIC [Concomitant]
     Active Substance: FENTANYL
     Dosage: 1 DF, UNK, 1 IN 72 HOURS, 25 MCG/HOURS (4.2 MG / 10 SQ. CM)
     Route: 062

REACTIONS (3)
  - Hepatocellular injury [Recovered/Resolved]
  - Condition aggravated [Recovered/Resolved]
  - Cholestasis [Recovered/Resolved]

NARRATIVE: CASE EVENT DATE: 20150908
